FAERS Safety Report 8542519-8 (Version None)
Quarter: 2012Q3

REPORT INFORMATION
  Report Type: 
  Country: None (occurrence: None)
  Receive Date: 20120726
  Receipt Date: 20110810
  Transmission Date: 20120928
  Serious: Yes (Other)
  Sender: FDA-Public Use
  Company Number: US-ASTRAZENECA-2011SE47874

PATIENT
  Age: 47 Year
  Sex: Female

DRUGS (3)
  1. AMBEREN [Concomitant]
  2. VITAMIN [Concomitant]
  3. SEROQUEL [Suspect]
     Indication: BIPOLAR DISORDER
     Route: 048
     Dates: start: 20080101, end: 20080101

REACTIONS (4)
  - NASAL CONGESTION [None]
  - TARDIVE DYSKINESIA [None]
  - SWOLLEN TONGUE [None]
  - HYPOAESTHESIA [None]
